FAERS Safety Report 8758324 (Version 1)
Quarter: 2012Q4

REPORT INFORMATION
  Report Type: 
  Country: US (occurrence: US)
  Receive Date: 20120829
  Receipt Date: 20120829
  Transmission Date: 20130627
  Serious: Yes (Hospitalization, Other)
  Sender: FDA-Public Use
  Company Number: PHEH2012US016467

PATIENT
  Sex: Female

DRUGS (13)
  1. DIOVAN HCT [Suspect]
     Indication: HYPERTENSION
     Dosage: 01 DF, QD
     Route: 048
     Dates: start: 2009
  2. LYRICA [Concomitant]
  3. FLEXERIL [Concomitant]
  4. METHADONE [Concomitant]
  5. HYDROCODONE [Concomitant]
  6. SYNTHROID [Concomitant]
  7. HIMOX [Concomitant]
  8. OMEPRAZOLE [Concomitant]
  9. CELEXA [Concomitant]
  10. FISH OIL [Concomitant]
  11. MAGNESIUM [Concomitant]
  12. VITAMIN D3 [Concomitant]
  13. MSM [Concomitant]

REACTIONS (10)
  - Breast neoplasm [Unknown]
  - Anaplastic large cell lymphoma T- and null-cell types recurrent [Unknown]
  - Fibromyalgia [Unknown]
  - Nervous system disorder [Unknown]
  - Post-traumatic stress disorder [Unknown]
  - Depression [Unknown]
  - Anaemia [Unknown]
  - Fluid retention [Unknown]
  - Oedema peripheral [Unknown]
  - Treatment noncompliance [None]
